FAERS Safety Report 9776171 (Version 1)
Quarter: 2013Q4

REPORT INFORMATION
  Report Type: Spontaneous
  Country: US (occurrence: None)
  Receive Date: 20131218
  Receipt Date: 20131218
  Transmission Date: 20140711
  Serious: Yes (Other)
  Sender: FDA-Public Use
  Company Number: 2013120050

PATIENT
  Age: 88 Year
  Sex: Female

DRUGS (1)
  1. LUPRAC [Suspect]
     Route: 048

REACTIONS (1)
  - Toxic skin eruption [None]
